FAERS Safety Report 5284586-3 (Version None)
Quarter: 2007Q1

REPORT INFORMATION
  Report Type: 
  Country: None (occurrence: None)
  Receive Date: 20061228
  Receipt Date: 20060825
  Transmission Date: 20070707
  Serious: Yes (Other)
  Sender: FDA-Public Use
  Company Number: PHEH2006US10964

PATIENT
  Age: 52 Year
  Sex: Female

DRUGS (2)
  1. PARLODEL [Suspect]
     Indication: PITUITARY TUMOUR
     Dosage: 5MG, QD, ORAL
     Route: 048
     Dates: start: 19990101
  2. ACIPHEX [Concomitant]

REACTIONS (3)
  - CONSTIPATION [None]
  - FEELING HOT [None]
  - PITUITARY TUMOUR RECURRENT [None]
